FAERS Safety Report 23911091 (Version 1)
Quarter: 2024Q2

REPORT INFORMATION
  Report Type: Spontaneous
  Country: US (occurrence: US)
  Receive Date: 20240528
  Receipt Date: 20240528
  Transmission Date: 20240716
  Serious: Yes (Hospitalization, Other)
  Sender: FDA-Public Use
  Company Number: US-DRL-USA-LIT/USA/24/0007438

PATIENT
  Age: 32 Year
  Sex: Male

DRUGS (1)
  1. NALOXONE [Suspect]
     Active Substance: NALOXONE
     Indication: Drug abuse

REACTIONS (2)
  - Therapy non-responder [Unknown]
  - Disease progression [Unknown]
